FAERS Safety Report 4610986-8 (Version None)
Quarter: 2005Q1

REPORT INFORMATION
  Report Type: 
  Country: None (occurrence: None)
  Receive Date: 20050315
  Receipt Date: 20050315
  Transmission Date: 20050727
  Serious: Yes (Hospitalization)
  Sender: FDA-Public Use
  Company Number: None

PATIENT
  Sex: Male
  Weight: 87.3 kg

DRUGS (7)
  1. CARMUSTINE [Suspect]
     Indication: GLIOBLASTOMA MULTIFORME
     Dosage: 206MG IV ONCE Q 6 WEEKS
     Route: 042
     Dates: start: 20041210
  2. TOPOTECAN [Suspect]
     Indication: GLIOBLASTOMA MULTIFORME
     Dosage: 3.1 MG IV OVER 72HRS WEEKLY X 6 WKS
     Route: 042
     Dates: start: 20041210, end: 20050120
  3. DILANTIN [Concomitant]
  4. LEXAPRO [Concomitant]
  5. DECADRON [Concomitant]
  6. PEPCID [Concomitant]
  7. PERCOCET [Concomitant]

REACTIONS (1)
  - PULMONARY EMBOLISM [None]
